FAERS Safety Report 20089430 (Version 1)
Quarter: 2021Q4

REPORT INFORMATION
  Report Type: Spontaneous
  Country: US (occurrence: None)
  Receive Date: 20211119
  Receipt Date: 20211119
  Transmission Date: 20220304
  Serious: No
  Sender: FDA-Public Use
  Company Number: US-Hikma Pharmaceuticals USA Inc.-US-H14001-21-00708

PATIENT
  Sex: Female

DRUGS (3)
  1. IPRATROPIUM [Suspect]
     Active Substance: IPRATROPIUM
     Indication: Rhinorrhoea
     Dosage: 42 MCG / SPRAY
     Route: 045
  2. GABAPENTIN [Concomitant]
     Active Substance: GABAPENTIN
     Indication: Spinal stenosis
     Dosage: UNKNOWN
     Route: 065
  3. EVENITY [Concomitant]
     Active Substance: ROMOSOZUMAB-AQQG
     Indication: Osteoporosis
     Dosage: UNKNOWN
     Route: 065

REACTIONS (5)
  - Insomnia [Unknown]
  - Dry mouth [Unknown]
  - Ageusia [Unknown]
  - Constipation [Unknown]
  - Pruritus [Unknown]
